FAERS Safety Report 19636296 (Version 5)
Quarter: 2022Q3

REPORT INFORMATION
  Report Type: Spontaneous
  Country: JP (occurrence: JP)
  Receive Date: 20210730
  Receipt Date: 20220714
  Transmission Date: 20221026
  Serious: Yes (Other)
  Sender: FDA-Public Use
  Company Number: JP-GSKNCCC-CASE-01266985_AE-47505

PATIENT

DRUGS (3)
  1. SUMATRIPTAN [Suspect]
     Active Substance: SUMATRIPTAN
     Indication: Migraine
     Dosage: UNK
  2. SUMATRIPTAN [Suspect]
     Active Substance: SUMATRIPTAN
  3. SUMATRIPTAN SUCCINATE [Concomitant]
     Active Substance: SUMATRIPTAN SUCCINATE
     Indication: Migraine
     Dosage: UNK

REACTIONS (2)
  - Depressed level of consciousness [Recovered/Resolved]
  - Abnormal sensation in eye [Recovered/Resolved]
